FAERS Safety Report 4437900-2 (Version None)
Quarter: 2004Q3

REPORT INFORMATION
  Report Type: 
  Country: None (occurrence: None)
  Receive Date: 20040831
  Receipt Date: 20040712
  Transmission Date: 20050211
  Serious: Yes (Hospitalization)
  Sender: FDA-Public Use
  Company Number: US-MERCK-0407USA01315

PATIENT
  Age: 82 Year
  Sex: Female

DRUGS (16)
  1. PERSANTIN INJ [Concomitant]
     Route: 065
  2. DIVALPROEX SODIUM [Concomitant]
     Route: 065
  3. DIVALPROEX SODIUM [Concomitant]
     Route: 065
  4. DOCUSATE SODIUM [Concomitant]
     Indication: CONSTIPATION PROPHYLAXIS
     Route: 065
  5. FERROUS SULFATE [Concomitant]
     Indication: IRON DEFICIENCY ANAEMIA
     Route: 048
  6. LATANOPROST [Concomitant]
     Route: 065
  7. OLANZAPINE [Concomitant]
     Route: 048
  8. OLANZAPINE [Concomitant]
     Route: 065
  9. OLANZAPINE [Concomitant]
     Route: 065
  10. PROTONIX [Concomitant]
     Indication: PROPHYLAXIS
     Route: 065
  11. PAROXETINE [Concomitant]
     Route: 065
  12. PAROXETINE [Concomitant]
     Route: 065
  13. PILOCARPINE [Concomitant]
     Route: 065
  14. VIOXX [Suspect]
     Indication: OSTEOARTHRITIS
     Route: 048
  15. TRAZODONE HYDROCHLORIDE [Concomitant]
     Route: 065
  16. TRAZODONE HYDROCHLORIDE [Concomitant]
     Route: 065

REACTIONS (1)
  - DELIRIUM [None]
